FAERS Safety Report 11270113 (Version 2)
Quarter: 2015Q3

REPORT INFORMATION
  Report Type: Spontaneous
  Country: PT (occurrence: PT)
  Receive Date: 20150714
  Receipt Date: 20150728
  Transmission Date: 20151125
  Serious: Yes (Other)
  Sender: FDA-Public Use
  Company Number: PT-TEVA-575987ISR

PATIENT
  Age: 32 Year
  Sex: Female
  Weight: 65 kg

DRUGS (1)
  1. COPAXONE [Suspect]
     Active Substance: GLATIRAMER ACETATE
     Indication: MULTIPLE SCLEROSIS
     Dosage: 20 MILLIGRAM DAILY;
     Route: 058
     Dates: start: 20150505, end: 20150609

REACTIONS (3)
  - Face oedema [Recovered/Resolved]
  - Inflammation [Recovered/Resolved]
  - Respiratory tract congestion [Recovered/Resolved]

NARRATIVE: CASE EVENT DATE: 20150609
